FAERS Safety Report 6997892-9 (Version None)
Quarter: 2010Q3

REPORT INFORMATION
  Report Type: 
  Country: None (occurrence: None)
  Receive Date: 20100920
  Receipt Date: 20100908
  Transmission Date: 20110219
  Serious: Yes (Life-Threatening, Hospitalization, Other)
  Sender: FDA-Public Use
  Company Number: ES-ELI_LILLY_AND_COMPANY-ES201009002927

PATIENT
  Sex: Female
  Weight: 64 kg

DRUGS (4)
  1. FORTEO [Suspect]
     Indication: OSTEOPOROSIS
     Dosage: 20 UG, DAILY (1/D)
     Route: 058
     Dates: start: 20100608
  2. ACETILCISTEINA [Concomitant]
     Indication: PRODUCTIVE COUGH
     Dosage: UNK, DAILY (1/D)
     Route: 048
  3. OMEPRAZOLE [Concomitant]
     Indication: PROPHYLAXIS
     Dosage: UNK, DAILY (1/D)
     Route: 048
  4. AUGMENTIN '125' [Concomitant]
     Indication: URINARY TRACT INFECTION
     Dosage: UNK, EVERY 12 HOURS
     Route: 048
     Dates: start: 20100905

REACTIONS (6)
  - ARRHYTHMIA [None]
  - HAEMATOMA INFECTION [None]
  - PYREXIA [None]
  - RESPIRATORY FAILURE [None]
  - TACHYCARDIA [None]
  - URINARY TRACT INFECTION [None]
